FAERS Safety Report 6811301-1 (Version None)
Quarter: 2010Q2

REPORT INFORMATION
  Report Type: 
  Country: None (occurrence: None)
  Receive Date: 20100630
  Receipt Date: 20091223
  Transmission Date: 20101027
  Serious: Yes (Other)
  Sender: FDA-Public Use
  Company Number: US-AMGEN-QUU382177

PATIENT
  Sex: Male

DRUGS (1)
  1. EPOGEN [Suspect]
     Indication: DIALYSIS
     Route: 065
     Dates: start: 20080101, end: 20091001

REACTIONS (1)
  - THERAPEUTIC RESPONSE DECREASED [None]
